FAERS Safety Report 7349721-1 (Version None)
Quarter: 2011Q1

REPORT INFORMATION
  Report Type: 
  Country: None (occurrence: None)
  Receive Date: 20110314
  Receipt Date: 20110214
  Transmission Date: 20110831
  Serious: Yes (Hospitalization)
  Sender: FDA-Public Use
  Company Number: US-BAYER-201012900NA

PATIENT
  Sex: Female
  Weight: 90.703 kg

DRUGS (14)
  1. OCELLA [Suspect]
     Indication: DEEP VEIN THROMBOSIS
     Route: 048
     Dates: start: 20080601, end: 20080801
  2. DARVOCET [Concomitant]
     Route: 048
  3. YASMIN [Suspect]
     Indication: PREMENSTRUAL SYNDROME
     Route: 048
     Dates: start: 20080601, end: 20080801
  4. YAZ [Suspect]
     Indication: CONTRACEPTION
     Dosage: UNK UNK, UNK
     Route: 065
     Dates: start: 20080601, end: 20080915
  5. NSAID'S [Concomitant]
     Route: 065
  6. MOTRIN [Concomitant]
     Indication: PAIN
     Dosage: UNK
     Dates: start: 20080913
  7. ASCORBIC ACID [Concomitant]
     Dosage: IF SICK
     Route: 065
  8. LORTAB [Concomitant]
     Indication: PAIN
  9. HYDROCODONE [Concomitant]
     Indication: PAIN
     Dosage: UNK
     Dates: start: 20080913
  10. LASIX [Concomitant]
  11. POTASSIUM [Concomitant]
  12. ANALGESICS [Concomitant]
  13. ROBAXIN [Concomitant]
     Indication: MUSCLE TIGHTNESS
     Dosage: UNK
     Dates: start: 20080913
  14. MUSCLE RELAXANT [Concomitant]

REACTIONS (9)
  - DEEP VEIN THROMBOSIS [None]
  - PAIN IN EXTREMITY [None]
  - MUSCULOSKELETAL PAIN [None]
  - OEDEMA PERIPHERAL [None]
  - PAIN [None]
  - ERYTHEMA [None]
  - INJURY [None]
  - TACHYCARDIA [None]
  - ANAEMIA [None]
